FAERS Safety Report 25955907 (Version 1)
Quarter: 2025Q4

REPORT INFORMATION
  Report Type: Spontaneous
  Country: US (occurrence: US)
  Receive Date: 20251024
  Receipt Date: 20251024
  Transmission Date: 20260118
  Serious: No
  Sender: CIPLA
  Company Number: US-CIPLA LTD.-2025US12915

PATIENT

DRUGS (2)
  1. ALBUTEROL [Suspect]
     Active Substance: ALBUTEROL
     Indication: COVID-19
     Dosage: AT DOSE (1 TO 2 PUFFS), QID FREQUENCY (4 TIMES DAILY)
  2. ALBUTEROL [Suspect]
     Active Substance: ALBUTEROL
     Dosage: ( AT DOSE (1 TO 2 PUFFS), QID FREQUENCY (4 TIMES DAILY) ( THE THIRD INHALER THE PATIENT WAS USING)
     Dates: start: 20251003

REACTIONS (4)
  - Drug dose omission by device [Unknown]
  - Off label use [Unknown]
  - Device delivery system issue [Unknown]
  - Product packaging quantity issue [Unknown]

NARRATIVE: CASE EVENT DATE: 20251003
